FAERS Safety Report 9251401 (Version 1)
Quarter: 2013Q1

REPORT INFORMATION
  Report Type: Spontaneous
  Country: US (occurrence: None)
  Receive Date: 20130305
  Receipt Date: 20130305
  Transmission Date: 20140127
  Serious: Yes (Other)
  Sender: FDA-Public Use
  Company Number: 163-21880-12100524

PATIENT
  Age: 70 Year
  Sex: Male

DRUGS (7)
  1. REVLIMID [Suspect]
     Indication: MYELODYSPLASTIC SYNDROME
     Dates: start: 20120607
  2. GABAPENTIN (GABAPENTIN) [Concomitant]
  3. BISOPROL FU (BISOPROLOL FUMURATE) [Concomitant]
  4. OMEPRAZOLE [Concomitant]
  5. PROBEN/COLC (COLBENEMID) [Concomitant]
  6. FUROSEMIDE (FUROSEMIDE) [Concomitant]
  7. LISINOPRIL (LISINOPRIL) [Concomitant]

REACTIONS (2)
  - Increased tendency to bruise [None]
  - Platelet count decreased [None]
